FAERS Safety Report 6975541-3 (Version None)
Quarter: 2010Q3

REPORT INFORMATION
  Report Type: 
  Country: None (occurrence: None)
  Receive Date: 20100910
  Receipt Date: 20100831
  Transmission Date: 20110219
  Serious: No
  Sender: FDA-Public Use
  Company Number: US-BIOGENIDEC-2010BI030326

PATIENT
  Age: 66 Year
  Sex: Female

DRUGS (1)
  1. AVONEX [Suspect]
     Indication: MULTIPLE SCLEROSIS
     Route: 030
     Dates: start: 20060930

REACTIONS (10)
  - BALANCE DISORDER [None]
  - FATIGUE [None]
  - FRUSTRATION [None]
  - HYPOTONIA [None]
  - INJECTION SITE HAEMORRHAGE [None]
  - INJECTION SITE PAIN [None]
  - MULTIPLE SCLEROSIS [None]
  - MUSCLE SPASMS [None]
  - MUSCULAR WEAKNESS [None]
  - VENOUS INJURY [None]
